FAERS Safety Report 21543982 (Version 2)
Quarter: 2022Q4

REPORT INFORMATION
  Report Type: Report from Study
  Country: US (occurrence: US)
  Receive Date: 20221102
  Receipt Date: 20221207
  Transmission Date: 20230113
  Serious: Yes (Other)
  Sender: FDA-Public Use
  Company Number: US-ABBVIE-4185064

PATIENT
  Sex: Female

DRUGS (2)
  1. HUMIRA [Suspect]
     Active Substance: ADALIMUMAB
     Indication: Hidradenitis
     Dosage: CITRATE FREE?FORM STRENGTH 40MG
     Route: 058
     Dates: end: 202211
  2. JANSSEN COVID-19 VACCINE [Concomitant]
     Active Substance: AD26.COV2.S
     Indication: COVID-19 immunisation
     Dosage: TIME INTERVAL: TOTAL: FIRST DOSE?ON IN ONCE
     Route: 030

REACTIONS (6)
  - Recurrent cancer [Not Recovered/Not Resolved]
  - Haemorrhage [Not Recovered/Not Resolved]
  - Drainage [Not Recovered/Not Resolved]
  - Stress [Not Recovered/Not Resolved]
  - Hidradenitis [Unknown]
  - Bladder disorder [Unknown]

NARRATIVE: CASE EVENT DATE: 20220101
